FAERS Safety Report 9247766 (Version 2)
Quarter: 2013Q3

REPORT INFORMATION
  Report Type: Spontaneous
  Country: US (occurrence: US)
  Receive Date: 20130423
  Receipt Date: 20130705
  Transmission Date: 20140515
  Serious: Yes (Hospitalization, Other)
  Sender: FDA-Public Use
  Company Number: US-ASTRAZENECA-2013SE27249

PATIENT
  Age: 13861 Day
  Sex: Female
  Weight: 91.2 kg

DRUGS (29)
  1. NEXIUM [Suspect]
     Indication: GASTROOESOPHAGEAL REFLUX DISEASE
     Route: 048
     Dates: start: 2009
  2. NEXIUM [Suspect]
     Indication: GASTROOESOPHAGEAL REFLUX DISEASE
     Route: 048
     Dates: start: 201002
  3. NEXIUM [Suspect]
     Indication: GASTROOESOPHAGEAL REFLUX DISEASE
     Route: 048
     Dates: start: 20110401
  4. FEOSOL [Concomitant]
  5. LISINOPRIL [Concomitant]
     Route: 048
     Dates: start: 20100413
  6. LISINOPRIL [Concomitant]
     Route: 048
     Dates: start: 20110705
  7. LYRICA [Concomitant]
     Indication: PAIN
     Route: 048
     Dates: start: 20090408
  8. LYRICA [Concomitant]
     Indication: NEUROPATHY PERIPHERAL
     Route: 048
     Dates: start: 20090408
  9. LYRICA [Concomitant]
     Indication: PAIN
     Dates: start: 20100201
  10. LYRICA [Concomitant]
     Indication: NEUROPATHY PERIPHERAL
     Dates: start: 20100201
  11. LYRICA [Concomitant]
     Indication: PAIN
  12. LYRICA [Concomitant]
     Indication: NEUROPATHY PERIPHERAL
  13. CETRIZINE [Concomitant]
  14. HYDROCHLOROTHIAZIDE [Concomitant]
     Dosage: 12.5
  15. LORATADINE [Concomitant]
  16. METHOCARBAMOL [Concomitant]
  17. ZOLOFT [Concomitant]
  18. CYMBALTA [Concomitant]
     Dates: start: 20110105
  19. HYDROCO-APAP [Concomitant]
     Indication: PAIN
     Dosage: 10-325, TID
     Route: 048
     Dates: start: 20110121
  20. HYOMAX-SL [Concomitant]
     Dates: start: 20110124
  21. BUTA-APAP-CAFF [Concomitant]
     Dosage: 50-500
     Dates: start: 20110211
  22. CARBINOXAMINE MALEATE [Concomitant]
     Dates: start: 20110221
  23. PROMETHAZINE [Concomitant]
     Dates: start: 20110221
  24. AMOXICILLIN [Concomitant]
     Route: 048
     Dates: start: 20110221
  25. IPRATROPIUM BR [Concomitant]
     Dates: start: 20110307
  26. PREVACID [Concomitant]
     Indication: GASTROOESOPHAGEAL REFLUX DISEASE
     Route: 048
     Dates: start: 20090408
  27. PREVACID [Concomitant]
     Indication: GASTROOESOPHAGEAL REFLUX DISEASE
     Route: 048
     Dates: start: 20100413
  28. XOPENEX [Concomitant]
     Indication: DYSPNOEA
     Dosage: 1-5 INHALATIONS QID
     Route: 055
     Dates: start: 20090408
  29. FLEXERIL [Concomitant]
     Indication: MYALGIA
     Dates: start: 20100201

REACTIONS (12)
  - Arthralgia [Unknown]
  - Spinal pain [Unknown]
  - Back disorder [Unknown]
  - Bone density decreased [Unknown]
  - Osteoporosis [Unknown]
  - Arthritis [Unknown]
  - Bone pain [Unknown]
  - Multiple fractures [Unknown]
  - Mental disability [Unknown]
  - Schizoaffective disorder [Unknown]
  - Scoliosis [Unknown]
  - Depression [Unknown]
